FAERS Safety Report 4309342-1 (Version None)
Quarter: 2004Q1

REPORT INFORMATION
  Report Type: 
  Country: None (occurrence: None)
  Receive Date: 20040302
  Receipt Date: 20040223
  Transmission Date: 20041129
  Serious: Yes (Hospitalization, Other)
  Sender: FDA-Public Use
  Company Number: WAES 0402USA01846

PATIENT
  Age: 73 Year
  Sex: Female

DRUGS (6)
  1. FOSAMAX [Suspect]
     Route: 048
     Dates: start: 20010101, end: 20040201
  2. CARVEDILOL [Concomitant]
  3. IRSOGLADINE MALEATE [Concomitant]
  4. VERAPAMIL HYDROCHLORIDE [Concomitant]
  5. WARFARIN POTASSIUM [Concomitant]
     Dates: start: 20040124, end: 20040129
  6. WARFARIN POTASSIUM [Concomitant]
     Dates: start: 20040130

REACTIONS (2)
  - ADVERSE EVENT [None]
  - PANCYTOPENIA [None]
